FAERS Safety Report 8881680 (Version 2)
Quarter: 2012Q4

REPORT INFORMATION
  Report Type: 
  Country: UA (occurrence: UA)
  Receive Date: 20121105
  Receipt Date: 20121210
  Transmission Date: 20130627
  Serious: Yes (Hospitalization)
  Sender: FDA-Public Use
  Company Number: UA-BAYER-2012-111677

PATIENT
  Age: 48 Year
  Sex: Female

DRUGS (2)
  1. MIRENA [Suspect]
     Indication: HYPERMENORRHEA
     Dosage: 20 mcg/24hr, CONT
     Route: 015
     Dates: start: 201204
  2. MIRENA [Suspect]
     Indication: ENDOMETRIOSIS

REACTIONS (2)
  - Myocardial infarction [Recovered/Resolved]
  - Pulmonary embolism [Recovered/Resolved]
